FAERS Safety Report 4433535-6 (Version None)
Quarter: 2004Q3

REPORT INFORMATION
  Report Type: 
  Country: None (occurrence: None)
  Receive Date: 20040824
  Receipt Date: 20040813
  Transmission Date: 20050211
  Serious: Yes (Hospitalization)
  Sender: FDA-Public Use
  Company Number: 2004219857US

PATIENT
  Age: 60 Year
  Sex: Female
  Weight: 90.4 kg

DRUGS (2)
  1. CAMPTOSAR [Suspect]
     Indication: GLIOBLASTOMA
     Dosage: 816 MG, CYCLIC, DAYS 1,8,22,29, UNK
     Dates: start: 20040603, end: 20040610
  2. CLINICAL TRIAL PROCEDURE(CLINICAL TRIAL PROCEDURE) UNKNOWN [Suspect]
     Indication: GLIOBLASTOMA
     Dates: start: 20040603, end: 20040611

REACTIONS (2)
  - BRAIN OEDEMA [None]
  - RADIATION INJURY [None]
